FAERS Safety Report 24818620 (Version 7)
Quarter: 2025Q2

REPORT INFORMATION
  Report Type: Report from Study
  Country: US (occurrence: US)
  Receive Date: 20250108
  Receipt Date: 20250415
  Transmission Date: 20250717
  Serious: Yes (Hospitalization, Other)
  Sender: SUNOVION
  Company Number: US-SUMITOMO PHARMA SWITZERLAND GMBH-2024SPA006654

PATIENT

DRUGS (2)
  1. ORGOVYX [Suspect]
     Active Substance: RELUGOLIX
     Indication: Prostate cancer
     Dosage: 360 MG, SINGLE
     Route: 048
     Dates: start: 20241213, end: 20241213
  2. ORGOVYX [Suspect]
     Active Substance: RELUGOLIX
     Dosage: 120 MG, QD
     Route: 048
     Dates: start: 20241214

REACTIONS (10)
  - Urinary retention [Not Recovered/Not Resolved]
  - Acute kidney injury [Recovering/Resolving]
  - Dyspnoea [Unknown]
  - Brain fog [Unknown]
  - Blood iron decreased [Unknown]
  - Urinary tract infection [Unknown]
  - Dizziness [Unknown]
  - Nausea [Unknown]
  - Weight increased [Unknown]
  - Hot flush [Unknown]
